FAERS Safety Report 25210508 (Version 2)
Quarter: 2025Q2

REPORT INFORMATION
  Report Type: Spontaneous
  Country: US (occurrence: US)
  Receive Date: 20250417
  Receipt Date: 20250523
  Transmission Date: 20250716
  Serious: No
  Sender: ALKERMES
  Company Number: US-ALKERMES INC.-ALK-2025-000952

PATIENT
  Age: 50 Year
  Sex: Female

DRUGS (3)
  1. VIVITROL [Suspect]
     Active Substance: NALTREXONE
     Indication: Alcohol use disorder
     Route: 030
     Dates: start: 20231103
  2. VIVITROL [Suspect]
     Active Substance: NALTREXONE
     Route: 030
     Dates: start: 20231103
  3. CYANOCOBALAMIN [Concomitant]
     Active Substance: CYANOCOBALAMIN
     Indication: Vitamin B12 deficiency
     Route: 030
     Dates: start: 20240404

REACTIONS (3)
  - Injection site discolouration [Recovered/Resolved with Sequelae]
  - Injection site pain [Recovered/Resolved]
  - Osteoarthritis [Unknown]

NARRATIVE: CASE EVENT DATE: 20231103
